FAERS Safety Report 19441333 (Version 1)
Quarter: 2021Q2

REPORT INFORMATION
  Report Type: Spontaneous
  Country: NL (occurrence: NL)
  Receive Date: 20210621
  Receipt Date: 20210621
  Transmission Date: 20210717
  Serious: Yes (Other)
  Sender: FDA-Public Use
  Company Number: NL-AUROBINDO-AUR-APL-2021-025601

PATIENT
  Age: 54 Year
  Sex: Male
  Weight: 90.4 kg

DRUGS (2)
  1. DICLOFENACNATRIUM 75 MG PROLONGED RELEASE TABLET [Suspect]
     Active Substance: DICLOFENAC SODIUM
     Indication: TENDON DISORDER
     Dosage: 75 MILLIGRAM, TWO TIMES A DAY (2X PER DAY 1 PIECE)
     Route: 065
     Dates: start: 20200821
  2. ROSUVASTATIN. [Concomitant]
     Active Substance: ROSUVASTATIN
     Indication: PRODUCT USED FOR UNKNOWN INDICATION
     Dosage: 10 MILLIGRAM
     Route: 065

REACTIONS (1)
  - Renal impairment [Not Recovered/Not Resolved]

NARRATIVE: CASE EVENT DATE: 20201026
